FAERS Safety Report 5552842-7 (Version None)
Quarter: 2007Q4

REPORT INFORMATION
  Report Type: 
  Country: None (occurrence: None)
  Receive Date: 20071212
  Receipt Date: 20070628
  Transmission Date: 20080405
  Serious: No
  Sender: FDA-Public Use
  Company Number: US-AMGEN-KDL228403

PATIENT
  Sex: Female
  Weight: 74.3 kg

DRUGS (6)
  1. ENBREL [Suspect]
     Indication: RHEUMATOID ARTHRITIS
     Route: 058
     Dates: start: 20051101, end: 20070601
  2. METHOTREXATE [Concomitant]
  3. LOTREL [Concomitant]
  4. MAXZIDE [Concomitant]
  5. VYTORIN [Concomitant]
  6. TYLENOL W/ CODEINE NO. 3 [Concomitant]

REACTIONS (2)
  - EXPOSURE TO COMMUNICABLE DISEASE [None]
  - TUBERCULOSIS SKIN TEST POSITIVE [None]
